FAERS Safety Report 7537417-2 (Version None)
Quarter: 2011Q2

REPORT INFORMATION
  Report Type: 
  Country: None (occurrence: None)
  Receive Date: 20110609
  Receipt Date: 20110606
  Transmission Date: 20111010
  Serious: Yes (Hospitalization, Other)
  Sender: FDA-Public Use
  Company Number: BR-ABBOTT-11P-020-0730692-00

PATIENT
  Sex: Male
  Weight: 75 kg

DRUGS (3)
  1. HUMIRA [Suspect]
     Dosage: INDUCTION DOSE
     Route: 058
     Dates: start: 20100808, end: 20100808
  2. HUMIRA [Suspect]
     Indication: CROHN'S DISEASE
     Dosage: INDUCTION DOSE
     Route: 058
     Dates: start: 20100801, end: 20100801
  3. HUMIRA [Suspect]
     Route: 058
     Dates: start: 20100815

REACTIONS (3)
  - GASTROINTESTINAL INFLAMMATION [None]
  - WOUND SECRETION [None]
  - WEIGHT DECREASED [None]
